FAERS Safety Report 10937004 (Version 2)
Quarter: 2015Q2

REPORT INFORMATION
  Report Type: Spontaneous
  Country: US (occurrence: US)
  Receive Date: 20150321
  Receipt Date: 20150525
  Transmission Date: 20150821
  Serious: No
  Sender: FDA-Public Use
  Company Number: US-JNJFOC-20130200247

PATIENT
  Sex: Male
  Weight: 117.94 kg

DRUGS (1)
  1. TOPAMAX [Suspect]
     Active Substance: TOPIRAMATE
     Indication: PAIN
     Route: 048

REACTIONS (3)
  - Pruritus [Recovered/Resolved]
  - Drug ineffective [Not Recovered/Not Resolved]
  - Vision blurred [Recovered/Resolved]
